FAERS Safety Report 4366866-9 (Version None)
Quarter: 2004Q2

REPORT INFORMATION
  Report Type: 
  Country: None (occurrence: None)
  Receive Date: 20040526
  Receipt Date: 20040526
  Transmission Date: 20050107
  Serious: Yes (Life-Threatening, Hospitalization)
  Sender: FDA-Public Use
  Company Number: None

PATIENT
  Sex: Male
  Weight: 119.3 kg

DRUGS (2)
  1. TRIMETHOPRIM + SULFAMETHOXAZOLE [Suspect]
     Indication: INFECTION
     Dosage: 1 DS TABLET BID X 12 DAYS
     Dates: start: 20040505, end: 20040517
  2. TRIMETHOPRIM + SULFAMETHOXAZOLE [Suspect]
     Indication: PROSTATITIS
     Dosage: 1 DS TABLET BID X 12 DAYS
     Dates: start: 20040505, end: 20040517

REACTIONS (1)
  - STEVENS-JOHNSON SYNDROME [None]
